FAERS Safety Report 21957382 (Version 2)
Quarter: 2023Q2

REPORT INFORMATION
  Report Type: Spontaneous
  Country: US (occurrence: US)
  Receive Date: 20230206
  Receipt Date: 20230508
  Transmission Date: 20230721
  Serious: No
  Sender: FDA-Public Use
  Company Number: US-AMNEAL PHARMACEUTICALS-2023-AMRX-00087

PATIENT
  Age: 53 Year
  Sex: Female
  Weight: 61.2 kg

DRUGS (1)
  1. BUPRENORPHINE TRANSDERMAL SYSTEM [Suspect]
     Active Substance: BUPRENORPHINE
     Indication: Product used for unknown indication
     Dosage: UNK
     Route: 062

REACTIONS (4)
  - Drug ineffective [Unknown]
  - Back pain [Recovering/Resolving]
  - Neck pain [Recovering/Resolving]
  - Drug withdrawal syndrome [Unknown]

NARRATIVE: CASE EVENT DATE: 20221207
